FAERS Safety Report 5404096-X (Version None)
Quarter: 2007Q3

REPORT INFORMATION
  Report Type: 
  Country: None (occurrence: None)
  Receive Date: 20070802
  Receipt Date: 20070725
  Transmission Date: 20080115
  Serious: Yes (Hospitalization)
  Sender: FDA-Public Use
  Company Number: HQWYE232226JUL07

PATIENT
  Age: 20 Year
  Sex: Male

DRUGS (3)
  1. RAPAMUNE [Suspect]
     Indication: IMMUNOSUPPRESSION
     Route: 048
     Dates: start: 20070711, end: 20070701
  2. RAPAMUNE [Suspect]
     Route: 048
     Dates: start: 20070701
  3. AZATHIOPRINE [Concomitant]

REACTIONS (3)
  - GALLBLADDER POLYP [None]
  - NAUSEA [None]
  - VOMITING [None]
